FAERS Safety Report 13038956 (Version 1)
Quarter: 2016Q4

REPORT INFORMATION
  Report Type: Spontaneous
  Country: US (occurrence: US)
  Receive Date: 20161216
  Receipt Date: 20161216
  Transmission Date: 20170207
  Serious: Yes (Hospitalization)
  Sender: FDA-Public Use
  Company Number: None

PATIENT
  Age: 74 Year
  Sex: Female

DRUGS (3)
  1. AFINITOR [Suspect]
     Active Substance: EVEROLIMUS
     Indication: CHRONIC OBSTRUCTIVE PULMONARY DISEASE
  2. AFINITOR [Suspect]
     Active Substance: EVEROLIMUS
     Indication: HEPATIC NEOPLASM
  3. AFINITOR [Suspect]
     Active Substance: EVEROLIMUS
     Indication: DEPRESSION

REACTIONS (2)
  - Abdominal pain upper [None]
  - Neoplasm malignant [None]

NARRATIVE: CASE EVENT DATE: 20161216
